FAERS Safety Report 9215598 (Version 2)
Quarter: 2013Q3

REPORT INFORMATION
  Report Type: Other
  Country: US (occurrence: US)
  Receive Date: 20130408
  Receipt Date: 20130712
  Transmission Date: 20140515
  Serious: Yes (Other)
  Sender: FDA-Public Use
  Company Number: US-RANBAXY-2013US-66949

PATIENT
  Sex: Male

DRUGS (2)
  1. ABSORICA [Suspect]
     Indication: ACNE
     Dosage: UNK
     Route: 065
     Dates: start: 201301
  2. ABSORICA [Suspect]
     Indication: ACNE
     Dosage: UNK
     Route: 065

REACTIONS (4)
  - Haemorrhoids [Recovering/Resolving]
  - Chest pain [Unknown]
  - Dyspnoea [Unknown]
  - Heart rate abnormal [Unknown]
